FAERS Safety Report 24081978 (Version 1)
Quarter: 2024Q3

REPORT INFORMATION
  Report Type: Spontaneous
  Country: US (occurrence: US)
  Receive Date: 20240712
  Receipt Date: 20240712
  Transmission Date: 20241016
  Serious: No
  Sender: SANDOZ
  Company Number: US-002147023-NVSC2023US216646

PATIENT
  Sex: Male

DRUGS (2)
  1. TACROLIMUS [Suspect]
     Active Substance: TACROLIMUS
     Indication: Psoriasis
     Dosage: UNK
     Route: 065
  2. TRIAMCINOLONE [Suspect]
     Active Substance: TRIAMCINOLONE
     Indication: Psoriasis
     Dosage: UNK
     Route: 065

REACTIONS (1)
  - Therapeutic product effect incomplete [Unknown]
